FAERS Safety Report 8156722-2 (Version None)
Quarter: 2012Q1

REPORT INFORMATION
  Report Type: 
  Country: None (occurrence: None)
  Receive Date: 20120222
  Receipt Date: 20120220
  Transmission Date: 20120608
  Serious: Yes (Life-Threatening, Other)
  Sender: FDA-Public Use
  Company Number: US-BAYER-2011-122791

PATIENT
  Sex: Male

DRUGS (1)
  1. AVELOX [Suspect]
     Indication: CELLULITIS
     Dosage: 1 DF, UNK
     Route: 048
     Dates: start: 20111201, end: 20111201

REACTIONS (9)
  - ANAPHYLACTIC SHOCK [None]
  - LIP SWELLING [None]
  - PHARYNGEAL OEDEMA [None]
  - ERYTHEMA [None]
  - URTICARIA [None]
  - PRURITUS [None]
  - WEIGHT INCREASED [None]
  - ANGIOEDEMA [None]
  - SWOLLEN TONGUE [None]
